FAERS Safety Report 5929237-7 (Version None)
Quarter: 2008Q4

REPORT INFORMATION
  Report Type: 
  Country: None (occurrence: None)
  Receive Date: 20081024
  Receipt Date: 20081022
  Transmission Date: 20090506
  Serious: Yes (Hospitalization)
  Sender: FDA-Public Use
  Company Number: GB-BRISTOL-MYERS SQUIBB COMPANY-14263636

PATIENT
  Age: 51 Year
  Sex: Male
  Weight: 65 kg

DRUGS (3)
  1. ENTECAVIR [Suspect]
     Indication: HEPATITIS B VIRUS TEST
     Route: 048
     Dates: start: 20080226, end: 20080319
  2. TENOFOVIR DISOPROXIL FUMARATE [Suspect]
     Indication: HEPATITIS B VIRUS TEST
     Route: 048
     Dates: start: 20080226, end: 20080319
  3. PROPRANOLOL [Concomitant]
     Indication: PORTAL HYPERTENSION
     Route: 048
     Dates: start: 20071106

REACTIONS (8)
  - HEPATIC CIRRHOSIS [None]
  - LARYNGEAL ERYTHEMA [None]
  - LARYNGEAL OEDEMA [None]
  - LARYNGOSPASM [None]
  - PRURITUS [None]
  - RASH MACULO-PAPULAR [None]
  - SEBORRHOEIC DERMATITIS [None]
  - TACHYCARDIA [None]
